FAERS Safety Report 15413273 (Version 4)
Quarter: 2018Q4

REPORT INFORMATION
  Report Type: Spontaneous
  Country: JP (occurrence: JP)
  Receive Date: 20180921
  Receipt Date: 20181029
  Transmission Date: 20190204
  Serious: Yes (Death)
  Sender: FDA-Public Use
  Company Number: JP-JNJFOC-20180918006

PATIENT
  Age: 88 Year
  Sex: Male
  Weight: 45 kg

DRUGS (12)
  1. SIRTURO [Suspect]
     Active Substance: BEDAQUILINE FUMARATE
     Indication: TUBERCULOSIS
     Route: 048
     Dates: start: 201808, end: 20180827
  2. SIRTURO [Suspect]
     Active Substance: BEDAQUILINE FUMARATE
     Indication: TUBERCULOSIS
     Route: 048
     Dates: start: 20180803, end: 201808
  3. DELTYBA [Concomitant]
     Active Substance: DELAMANID
     Route: 050
     Dates: start: 20180130, end: 20180827
  4. LIXIANA [Concomitant]
     Active Substance: EDOXABAN TOSYLATE
     Route: 050
     Dates: start: 20180528
  5. ZYVOX [Concomitant]
     Active Substance: LINEZOLID
     Route: 050
     Dates: start: 20180126, end: 20180827
  6. CYCLOSERINE. [Concomitant]
     Active Substance: CYCLOSERINE
     Route: 050
     Dates: start: 20180126, end: 20180827
  7. VITAMIN B6 [Concomitant]
     Active Substance: PYRIDOXINE HYDROCHLORIDE
     Route: 050
     Dates: start: 20180126, end: 20180827
  8. LANSOPRAZOLE. [Concomitant]
     Active Substance: LANSOPRAZOLE
     Route: 050
     Dates: start: 20171228, end: 20180827
  9. FUROSEMIDE. [Concomitant]
     Active Substance: FUROSEMIDE
     Indication: CARDIAC FAILURE
     Dosage: 20-30 MG AND THEN INCREASE TO 60 MG
     Route: 065
  10. FUROSEMIDE. [Concomitant]
     Active Substance: FUROSEMIDE
     Indication: PLEURAL EFFUSION
     Dosage: 20-30 MG AND THEN INCREASE TO 60 MG
     Route: 065
  11. AUGMENTIN [Concomitant]
     Active Substance: AMOXICILLIN\CLAVULANATE POTASSIUM
     Route: 050
     Dates: start: 20180126, end: 20180827
  12. TOLVAPTAN [Concomitant]
     Active Substance: TOLVAPTAN
     Indication: CARDIAC FAILURE
     Route: 065
     Dates: start: 20180731, end: 20180809

REACTIONS (1)
  - Cardiac failure congestive [Fatal]

NARRATIVE: CASE EVENT DATE: 20180823
